FAERS Safety Report 5216680-7 (Version None)
Quarter: 2006Q4

REPORT INFORMATION
  Report Type: 
  Country: None (occurrence: None)
  Receive Date: 20061130
  Receipt Date: 20060417
  Transmission Date: 20070319
  Serious: Yes (Hospitalization, Other)
  Sender: FDA-Public Use
  Company Number: US_0509122433

PATIENT
  Age: 24 Year
  Sex: Male
  Weight: 68 kg

DRUGS (10)
  1. OLANZAPINE [Suspect]
     Dosage: SEE IMAGE
     Dates: start: 20000808, end: 20010503
  2. OLANZAPINE [Suspect]
     Dosage: SEE IMAGE
     Dates: start: 20010719, end: 20010801
  3. OLANZAPINE [Suspect]
     Dosage: SEE IMAGE
     Dates: start: 20020301, end: 20020601
  4. OLANZAPINE [Suspect]
     Dosage: SEE IMAGE
     Dates: start: 20010101
  5. HALDOL SOLUTAB [Concomitant]
  6. DEPAKOTE [Concomitant]
  7. LITHIUM CARBONATE [Concomitant]
  8. CELEXA [Concomitant]
  9. ZOLOFT [Concomitant]
  10. RISPERIDONE [Concomitant]

REACTIONS (5)
  - BLOOD GLUCOSE INCREASED [None]
  - DIABETES MELLITUS INSULIN-DEPENDENT [None]
  - DIABETIC COMA [None]
  - GASTRITIS [None]
  - PRESCRIBED OVERDOSE [None]
